FAERS Safety Report 13375534 (Version 1)
Quarter: 2017Q1

REPORT INFORMATION
  Report Type: Spontaneous
  Country: CA (occurrence: CA)
  Receive Date: 20170328
  Receipt Date: 20170328
  Transmission Date: 20170429
  Serious: Yes (Other)
  Sender: FDA-Public Use
  Company Number: CA-ROCHE-1911079

PATIENT
  Sex: Female

DRUGS (9)
  1. RISEDRONATE [Concomitant]
     Active Substance: RISEDRONATE SODIUM
  2. RAMIPRIL. [Concomitant]
     Active Substance: RAMIPRIL
  3. METFORMIN [Concomitant]
     Active Substance: METFORMIN HYDROCHLORIDE
     Route: 065
  4. CELLCEPT [Suspect]
     Active Substance: MYCOPHENOLATE MOFETIL\MYCOPHENOLATE MOFETIL HYDROCHLORIDE
     Indication: PARANEOPLASTIC PEMPHIGUS
     Route: 065
  5. ROSUVASTATIN. [Concomitant]
     Active Substance: ROSUVASTATIN
  6. TYLENOL [Concomitant]
     Active Substance: ACETAMINOPHEN
  7. PLAVIX [Concomitant]
     Active Substance: CLOPIDOGREL BISULFATE
  8. AMLODIPIN [Concomitant]
     Active Substance: AMLODIPINE BESYLATE
  9. PREDNISONE. [Suspect]
     Active Substance: PREDNISONE
     Indication: PARANEOPLASTIC PEMPHIGUS
     Dosage: 40-50 MG
     Route: 065

REACTIONS (4)
  - Drug ineffective [Unknown]
  - Substance-induced psychotic disorder [Unknown]
  - Weight decreased [Unknown]
  - Oral disorder [Unknown]
